FAERS Safety Report 5365410-7 (Version None)
Quarter: 2007Q2

REPORT INFORMATION
  Report Type: 
  Country: None (occurrence: None)
  Receive Date: 20070530
  Receipt Date: 20070114
  Transmission Date: 20071010
  Serious: No
  Sender: FDA-Public Use
  Company Number: 2006PV022658

PATIENT
  Age: 55 Year
  Sex: Female
  Weight: 129.2752 kg

DRUGS (6)
  1. BYETTA [Suspect]
     Indication: DIABETES MELLITUS
     Dosage: 10 MCG; BID; SC, 10 MCG; BID; SC
     Route: 058
     Dates: start: 20060101, end: 20060101
  2. BYETTA [Suspect]
     Indication: DIABETES MELLITUS
     Dosage: 10 MCG; BID; SC, 10 MCG; BID; SC
     Route: 058
     Dates: start: 20050101, end: 20060901
  3. HUMULIN N [Concomitant]
  4. INSULIN [Concomitant]
  5. GLIPIZIDE [Concomitant]
  6. HUMULIN R [Concomitant]

REACTIONS (1)
  - WEIGHT DECREASED [None]
